FAERS Safety Report 24991266 (Version 1)
Quarter: 2025Q1

REPORT INFORMATION
  Report Type: Spontaneous
  Country: US (occurrence: US)
  Receive Date: 20250220
  Receipt Date: 20250220
  Transmission Date: 20250408
  Serious: No
  Sender: BAUSCH AND LOMB
  Company Number: US-BAUSCHBL-2025BNL002612

PATIENT
  Age: 85 Year
  Sex: Female

DRUGS (3)
  1. TIMOLOL MALEATE [Suspect]
     Active Substance: TIMOLOL MALEATE
     Indication: Product used for unknown indication
     Dosage: 1 DROP IN BOTH EYES ONCE DAILY
     Route: 047
  2. TIMOLOL MALEATE [Suspect]
     Active Substance: TIMOLOL MALEATE
  3. LATANOPROST [Concomitant]
     Active Substance: LATANOPROST
     Indication: Product used for unknown indication
     Route: 047

REACTIONS (8)
  - Drug hypersensitivity [Recovering/Resolving]
  - Eyelid margin crusting [Recovering/Resolving]
  - Eye pruritus [Recovering/Resolving]
  - Eye disorder [Recovering/Resolving]
  - Condition aggravated [Recovering/Resolving]
  - Adverse drug reaction [Unknown]
  - Product label issue [Unknown]
  - Inappropriate schedule of product administration [Unknown]
